FAERS Safety Report 18291549 (Version 1)
Quarter: 2020Q3

REPORT INFORMATION
  Report Type: Spontaneous
  Country: GR (occurrence: GR)
  Receive Date: 20200921
  Receipt Date: 20200921
  Transmission Date: 20201103
  Serious: Yes (Hospitalization, Other)
  Sender: FDA-Public Use
  Company Number: GR-DSJP-DSU-2020-127377

PATIENT
  Age: 79 Year
  Sex: Female

DRUGS (1)
  1. CHOLESTAGEL [Suspect]
     Active Substance: COLESEVELAM HYDROCHLORIDE
     Indication: HYPERCHOLESTEROLAEMIA
     Dosage: 1875 MG, BID
     Route: 048

REACTIONS (3)
  - Autoimmune hepatitis [Unknown]
  - Gastrointestinal disorder [Unknown]
  - Drug ineffective [Unknown]
